FAERS Safety Report 14545461 (Version 5)
Quarter: 2018Q3

REPORT INFORMATION
  Report Type: Spontaneous
  Country: JP (occurrence: JP)
  Receive Date: 20180219
  Receipt Date: 20180702
  Transmission Date: 20181010
  Serious: Yes (Hospitalization, Other)
  Sender: FDA-Public Use
  Company Number: PHJP2018JP003561

PATIENT
  Age: 3 Year
  Sex: Female

DRUGS (3)
  1. PREDNISOLONE. [Suspect]
     Active Substance: PREDNISOLONE
     Indication: FOCAL SEGMENTAL GLOMERULOSCLEROSIS
     Dosage: UNK
     Route: 065
  2. NEORAL [Suspect]
     Active Substance: CYCLOSPORINE
     Indication: FOCAL SEGMENTAL GLOMERULOSCLEROSIS
     Dosage: UNK
     Route: 048
  3. SANDIMMUN INFUSION [Suspect]
     Active Substance: CYCLOSPORINE
     Indication: FOCAL SEGMENTAL GLOMERULOSCLEROSIS
     Dosage: UNK
     Route: 041

REACTIONS (6)
  - Glaucoma [Not Recovered/Not Resolved]
  - Disease progression [Unknown]
  - Product use in unapproved indication [Unknown]
  - End stage renal disease [Recovering/Resolving]
  - Blindness [Not Recovered/Not Resolved]
  - Focal segmental glomerulosclerosis [Unknown]
